FAERS Safety Report 6596517-4 (Version None)
Quarter: 2010Q1

REPORT INFORMATION
  Report Type: 
  Country: None (occurrence: None)
  Receive Date: 20100212
  Receipt Date: 20100119
  Transmission Date: 20100710
  Serious: No
  Sender: FDA-Public Use
  Company Number: 2010-00063

PATIENT
  Age: 34 Year
  Sex: Female
  Weight: 117.9352 kg

DRUGS (2)
  1. ZICAM ALLERGY RELIEF GEL SWABS [Suspect]
     Dosage: Q 4 HRS, 1 DAY
     Dates: start: 20100116, end: 20100117
  2. YASMIN [Concomitant]

REACTIONS (2)
  - AGEUSIA [None]
  - ANOSMIA [None]
